FAERS Safety Report 6075339-7 (Version None)
Quarter: 2009Q1

REPORT INFORMATION
  Report Type: 
  Country: None (occurrence: None)
  Receive Date: 20090212
  Receipt Date: 20090130
  Transmission Date: 20090719
  Serious: Yes (Hospitalization, Other)
  Sender: FDA-Public Use
  Company Number: US-WYE-H07983209

PATIENT
  Sex: Male
  Weight: 127.12 kg

DRUGS (3)
  1. REFACTO [Suspect]
     Route: 042
  2. REFACTO [Suspect]
     Dosage: 3000 UNITS EVERY MONDAY, WEDNESDAY, AND SUNDAY AND 5000 UNITS EVERY FRIDAY
     Route: 042
     Dates: end: 20090101
  3. REFACTO [Suspect]
     Dosage: 3000 UNITS EVERY MONDAY, WEDNESDAY, AND SUNDAY AND 5000 UNITS EVERY FRIDAY
     Route: 042
     Dates: start: 20090101

REACTIONS (7)
  - ATELECTASIS [None]
  - DRUG INEFFECTIVE [None]
  - HAEMARTHROSIS [None]
  - HAEMORRHAGE [None]
  - INFLAMMATION [None]
  - MUSCLE STRAIN [None]
  - PLEURISY [None]
